FAERS Safety Report 7494137-0 (Version None)
Quarter: 2011Q2

REPORT INFORMATION
  Report Type: 
  Country: None (occurrence: None)
  Receive Date: 20110520
  Receipt Date: 20110510
  Transmission Date: 20111010
  Serious: Yes (Other)
  Sender: FDA-Public Use
  Company Number: US-JNJFOC-20110504838

PATIENT
  Age: 35 Year
  Sex: Male

DRUGS (2)
  1. UNKNOWN MEDICATION [Concomitant]
     Route: 065
  2. INVEGA SUSTENNA [Suspect]
     Indication: SCHIZOPHRENIA
     Route: 030
     Dates: start: 20110317

REACTIONS (4)
  - CATATONIA [None]
  - PRODUCT QUALITY ISSUE [None]
  - DISTURBANCE IN ATTENTION [None]
  - ABNORMAL BEHAVIOUR [None]
